FAERS Safety Report 7930236-4 (Version None)
Quarter: 2011Q4

REPORT INFORMATION
  Report Type: 
  Country: None (occurrence: None)
  Receive Date: 20111121
  Receipt Date: 20111111
  Transmission Date: 20120403
  Serious: Yes (Other)
  Sender: FDA-Public Use
  Company Number: US-US-EMD SERONO, INC.-235498K09USA

PATIENT
  Sex: Female

DRUGS (9)
  1. BLOOD PRESSURE PILL [Concomitant]
     Indication: HYPERTENSION
  2. PREVACID [Concomitant]
     Indication: DYSPEPSIA
  3. ZADITOR [Concomitant]
  4. WELCHOL [Concomitant]
  5. LASIX [Concomitant]
  6. REBIF [Suspect]
     Indication: MULTIPLE SCLEROSIS
     Route: 058
     Dates: start: 20040715
  7. GLUCOPHAGE [Concomitant]
     Indication: GLUCOSE TOLERANCE IMPAIRED
  8. LIPITOR [Concomitant]
     Indication: BLOOD CHOLESTEROL INCREASED
     Dates: end: 20090101
  9. ALDACTONE [Concomitant]

REACTIONS (3)
  - BLADDER OPERATION [None]
  - BLOOD CHOLESTEROL INCREASED [None]
  - INCISIONAL HERNIA [None]
